FAERS Safety Report 9133665 (Version 1)
Quarter: 2013Q1

REPORT INFORMATION
  Report Type: Spontaneous
  Country: GB (occurrence: GB)
  Receive Date: 20130302
  Receipt Date: 20130302
  Transmission Date: 20140127
  Serious: Yes (Other)
  Sender: FDA-Public Use
  Company Number: PHHY2013GB019780

PATIENT
  Age: 24 Year
  Sex: Female
  Weight: 87 kg

DRUGS (8)
  1. CODEINE PHOSPHATE [Suspect]
     Dosage: 60 MG, UNK
     Route: 048
  2. DIAMORPHINE HYDROCHLORIDE [Suspect]
     Dosage: 10 MG, UNK
     Route: 030
  3. REMIFENTANIL [Suspect]
     Dosage: 40 UG, UNK
     Route: 042
  4. REMIFENTANIL [Suspect]
     Dosage: 120 UG, UNK
  5. ENTONOX [Concomitant]
  6. PARACETAMOL [Concomitant]
     Dosage: 1 G, UNK
     Route: 048
  7. MIFEPRISTONE [Concomitant]
     Dosage: 200 UG, UNK
     Route: 048
  8. MISOPROSTOL [Concomitant]
     Dosage: 100 UG, UNK

REACTIONS (4)
  - Cardio-respiratory arrest [Recovered/Resolved]
  - Unresponsive to stimuli [Recovered/Resolved]
  - Dyspnoea [Recovered/Resolved]
  - Cyanosis [Recovered/Resolved]
